FAERS Safety Report 6405901-0 (Version None)
Quarter: 2009Q4

REPORT INFORMATION
  Report Type: 
  Country: None (occurrence: None)
  Receive Date: 20091016
  Receipt Date: 20091016
  Transmission Date: 20100525
  Serious: Yes (Hospitalization)
  Sender: FDA-Public Use
  Company Number: None

PATIENT
  Age: 34 Year
  Sex: Female
  Weight: 74.8435 kg

DRUGS (1)
  1. YASMIN [Suspect]
     Indication: CONTRACEPTION
     Dosage: DAILY PO CONTINUALLY SINCE 2004
     Route: 048

REACTIONS (3)
  - BLADDER OBSTRUCTION [None]
  - CHOLECYSTECTOMY [None]
  - CHOLELITHIASIS [None]
